FAERS Safety Report 6356699-6 (Version None)
Quarter: 2009Q3

REPORT INFORMATION
  Report Type: 
  Country: None (occurrence: None)
  Receive Date: 20090911
  Receipt Date: 20090911
  Transmission Date: 20100115
  Serious: No
  Sender: FDA-Public Use
  Company Number: None

PATIENT
  Sex: Male
  Weight: 81.6475 kg

DRUGS (1)
  1. LEVITRA [Suspect]
     Indication: ERECTILE DYSFUNCTION
     Dosage: 1 10MG TABLET AS NEEDED PO
     Route: 048
     Dates: start: 20090212, end: 20090903

REACTIONS (2)
  - NAUSEA [None]
  - VOMITING [None]
